FAERS Safety Report 11307225 (Version 1)
Quarter: 2015Q3

REPORT INFORMATION
  Report Type: Spontaneous
  Country: US (occurrence: US)
  Receive Date: 20150723
  Receipt Date: 20150723
  Transmission Date: 20151125
  Serious: Yes (Other)
  Sender: FDA-Public Use
  Company Number: US-SHIRE-US201508082

PATIENT
  Age: 14 Year
  Sex: Female
  Weight: 58.96 kg

DRUGS (3)
  1. VYVANSE [Suspect]
     Active Substance: LISDEXAMFETAMINE DIMESYLATE
     Indication: ATTENTION DEFICIT/HYPERACTIVITY DISORDER
     Dosage: 40 MG, 1X/DAY:QD
     Route: 048
     Dates: start: 2009, end: 201505
  2. VYVANSE [Suspect]
     Active Substance: LISDEXAMFETAMINE DIMESYLATE
     Dosage: 40 MG, ONE DOSE
     Route: 048
     Dates: start: 20150630, end: 20150630
  3. VYVANSE [Suspect]
     Active Substance: LISDEXAMFETAMINE DIMESYLATE
     Dosage: 40 MG, ONE DOSE
     Route: 048
     Dates: start: 20150621, end: 20150621

REACTIONS (6)
  - Seizure [Recovered/Resolved]
  - Basedow^s disease [Not Recovered/Not Resolved]
  - Blood pressure increased [Recovered/Resolved]
  - Exophthalmos [Recovering/Resolving]
  - Heart rate increased [Recovered/Resolved]
  - Anxiety [Recovered/Resolved]

NARRATIVE: CASE EVENT DATE: 201402
